FAERS Safety Report 8264622-2 (Version None)
Quarter: 2012Q2

REPORT INFORMATION
  Report Type: 
  Country: None (occurrence: None)
  Receive Date: 20120403
  Receipt Date: 20120305
  Transmission Date: 20120825
  Serious: Yes (Other)
  Sender: FDA-Public Use
  Company Number: 2523595-2012-00004

PATIENT
  Age: 18 Year
  Sex: Female

DRUGS (3)
  1. LOBETALOL [Concomitant]
  2. UVADEX [Suspect]
     Indication: GRAFT VERSUS HOST DISEASE
     Dates: start: 20120130, end: 20120228
  3. NORVAX [Concomitant]

REACTIONS (4)
  - RETINAL INJURY [None]
  - BLINDNESS [None]
  - SINUSITIS [None]
  - PHOTOSENSITIVITY REACTION [None]
